FAERS Safety Report 19403045 (Version 2)
Quarter: 2021Q2

REPORT INFORMATION
  Report Type: Spontaneous
  Country: US (occurrence: US)
  Receive Date: 20210611
  Receipt Date: 20210617
  Transmission Date: 20210717
  Serious: Yes (Hospitalization)
  Sender: FDA-Public Use
  Company Number: US-ASTRAZENECA-2021A448096

PATIENT
  Age: 23151 Day
  Sex: Female
  Weight: 53.1 kg

DRUGS (6)
  1. LYNPARZA [Suspect]
     Active Substance: OLAPARIB
     Indication: BREAST CANCER
     Route: 048
     Dates: start: 20210511
  2. LYNPARZA [Suspect]
     Active Substance: OLAPARIB
     Indication: MALIGNANT PERITONEAL NEOPLASM
     Route: 048
     Dates: start: 20210415
  3. LYNPARZA [Suspect]
     Active Substance: OLAPARIB
     Indication: BREAST CANCER
     Route: 048
     Dates: start: 20210415
  4. AVASTIN [Suspect]
     Active Substance: BEVACIZUMAB
     Indication: INTRA-ABDOMINAL FLUID COLLECTION
     Dosage: AVASTIN INFUSION GIVEN EVERY 21 DAYS
     Route: 065
  5. AVASTIN [Suspect]
     Active Substance: BEVACIZUMAB
     Indication: NEOPLASM MALIGNANT
     Dosage: AVASTIN INFUSION GIVEN EVERY 21 DAYS
     Route: 065
  6. LYNPARZA [Suspect]
     Active Substance: OLAPARIB
     Indication: MALIGNANT PERITONEAL NEOPLASM
     Route: 048
     Dates: start: 20210511

REACTIONS (8)
  - Pruritus [Unknown]
  - Rash macular [Unknown]
  - Pruritus [Unknown]
  - Joint swelling [Unknown]
  - Limb mass [Unknown]
  - Hypersensitivity [Unknown]
  - Peripheral swelling [Unknown]
  - Ear pruritus [Unknown]

NARRATIVE: CASE EVENT DATE: 20210602
